FAERS Safety Report 4874101-8 (Version None)
Quarter: 2005Q4

REPORT INFORMATION
  Report Type: 
  Country: None (occurrence: None)
  Receive Date: 20051201
  Receipt Date: 20050808
  Transmission Date: 20060501
  Serious: No
  Sender: FDA-Public Use
  Company Number: 2005PV000917

PATIENT
  Age: 73 Year
  Sex: Male
  Weight: 91.6266 kg

DRUGS (6)
  1. BYETTA [Suspect]
     Indication: DIABETES MELLITUS NON-INSULIN-DEPENDENT
     Dosage: 5 MCG; BID; SC
     Route: 058
     Dates: start: 20050729
  2. METFORMIN HCL [Concomitant]
  3. MICRONASE [Concomitant]
  4. ACTOS [Concomitant]
  5. VIOXX [Concomitant]
  6. MOTRIN [Concomitant]

REACTIONS (4)
  - BLOOD GLUCOSE INCREASED [None]
  - DECREASED APPETITE [None]
  - EARLY SATIETY [None]
  - HYPERHIDROSIS [None]
